FAERS Safety Report 9957085 (Version 1)
Quarter: 2014Q1

REPORT INFORMATION
  Report Type: Report from Study
  Country: US (occurrence: US)
  Receive Date: 20140304
  Receipt Date: 20140304
  Transmission Date: 20141002
  Serious: No
  Sender: FDA-Public Use
  Company Number: US-ABBVIE-13P-163-1097708-00

PATIENT
  Age: 71 Year
  Sex: Female

DRUGS (7)
  1. HUMIRA [Suspect]
     Indication: RHEUMATOID ARTHRITIS
     Dates: start: 20130404
  2. METHOTREXATE [Concomitant]
     Indication: RHEUMATOID ARTHRITIS
     Dosage: EVERY SUNDAY
     Route: 048
  3. SYNTHROID [Concomitant]
     Indication: HYPOTHYROIDISM
     Route: 048
  4. FOLIC ACID [Concomitant]
     Indication: VITAMIN SUPPLEMENTATION
     Route: 048
  5. BENAZEPRIL [Concomitant]
     Indication: HYPERTENSION
     Route: 048
  6. LIPITOR [Concomitant]
     Indication: BLOOD CHOLESTEROL INCREASED
     Route: 048
  7. VITAMIN D [Concomitant]
     Indication: VITAMIN SUPPLEMENTATION

REACTIONS (1)
  - Headache [Recovering/Resolving]
